FAERS Safety Report 5079136-0 (Version None)
Quarter: 2006Q3

REPORT INFORMATION
  Report Type: 
  Country: None (occurrence: None)
  Receive Date: 20060814
  Receipt Date: 20060803
  Transmission Date: 20061208
  Serious: Yes (Other)
  Sender: FDA-Public Use
  Company Number: US-AVENTIS-200616436US

PATIENT
  Sex: Female

DRUGS (6)
  1. KETEK [Suspect]
     Indication: BRONCHITIS
     Route: 048
     Dates: start: 20060615, end: 20060620
  2. KETEK [Suspect]
     Route: 048
     Dates: start: 20060712, end: 20060717
  3. KETEK [Suspect]
     Indication: OTITIS MEDIA
     Route: 048
     Dates: start: 20060615, end: 20060620
  4. KETEK [Suspect]
     Route: 048
     Dates: start: 20060712, end: 20060717
  5. ALLEGRA-D 12 HOUR [Concomitant]
     Indication: MULTIPLE ALLERGIES
     Dosage: DOSE: UNK
  6. RHINOCORT [Concomitant]
     Indication: MULTIPLE ALLERGIES
     Dosage: DOSE: UNK

REACTIONS (7)
  - ALANINE AMINOTRANSFERASE INCREASED [None]
  - ASPARTATE AMINOTRANSFERASE INCREASED [None]
  - CONTUSION [None]
  - DYSURIA [None]
  - HEPATIC STEATOSIS [None]
  - HEPATITIS FULMINANT [None]
  - HEPATOCELLULAR DAMAGE [None]
